FAERS Safety Report 20082641 (Version 2)
Quarter: 2022Q4

REPORT INFORMATION
  Report Type: Report from Study
  Country: US (occurrence: US)
  Receive Date: 20211117
  Receipt Date: 20221014
  Transmission Date: 20230113
  Serious: Yes (Hospitalization)
  Sender: FDA-Public Use
  Company Number: US-SHIRE-US201839902

PATIENT
  Sex: Male

DRUGS (3)
  1. IDURSULFASE [Suspect]
     Active Substance: IDURSULFASE
     Indication: Mucopolysaccharidosis II
     Dosage: 0.5 MILLIGRAM/KILOGRAM, 1/WEEK
     Route: 042
     Dates: start: 20020131
  2. XARELTO [Concomitant]
     Active Substance: RIVAROXABAN
     Indication: Jugular vein thrombosis
     Dosage: UNK
     Route: 048
     Dates: start: 20171025
  3. AMITRIPTYLINE [Concomitant]
     Active Substance: AMITRIPTYLINE
     Indication: Acute respiratory failure
     Dosage: UNK
     Route: 048
     Dates: start: 20180928

REACTIONS (3)
  - Tracheal disorder [Recovered/Resolved]
  - Excessive granulation tissue [Recovered/Resolved]
  - Dyspnoea [Unknown]

NARRATIVE: CASE EVENT DATE: 20180501
